FAERS Safety Report 7535482-X (Version None)
Quarter: 2011Q2

REPORT INFORMATION
  Report Type: 
  Country: None (occurrence: None)
  Receive Date: 20110609
  Receipt Date: 20110531
  Transmission Date: 20111010
  Serious: Yes (Hospitalization)
  Sender: FDA-Public Use
  Company Number: PL-AMGEN-POLSP2011022173

PATIENT
  Age: 49 Year
  Sex: Male
  Weight: 50 kg

DRUGS (5)
  1. MOVALIS [Concomitant]
     Indication: ANKYLOSING SPONDYLITIS
     Dosage: 15 MG
     Route: 048
     Dates: end: 20110402
  2. POLTRAM [Concomitant]
     Dosage: UNK
     Dates: end: 20110402
  3. METYPRED                           /00049602/ [Concomitant]
     Indication: ANKYLOSING SPONDYLITIS
     Dosage: 8 MG/24H
     Route: 048
  4. ENBREL [Suspect]
     Indication: ANKYLOSING SPONDYLITIS
     Dosage: 50 MG, 1X/WEEK
     Route: 058
     Dates: start: 20110329, end: 20110329
  5. SULFASALAZINE [Concomitant]
     Indication: ANKYLOSING SPONDYLITIS
     Dosage: 2 G, QD
     Route: 048

REACTIONS (6)
  - DYSPNOEA [None]
  - HEADACHE [None]
  - CHEST PAIN [None]
  - VERTIGO [None]
  - ASTHENIA [None]
  - COUGH [None]
